FAERS Safety Report 5055828-4 (Version None)
Quarter: 2006Q3

REPORT INFORMATION
  Report Type: 
  Country: None (occurrence: None)
  Receive Date: 20060718
  Receipt Date: 20060718
  Transmission Date: 20061208
  Serious: No
  Sender: FDA-Public Use
  Company Number: None

PATIENT
  Sex: Female

DRUGS (1)
  1. BACITRACIN [Suspect]
     Indication: PROPHYLAXIS
     Dosage: TOP
     Route: 061

REACTIONS (3)
  - ERYTHEMA [None]
  - PROCEDURAL SITE REACTION [None]
  - RASH [None]
